FAERS Safety Report 5535364-9 (Version None)
Quarter: 2007Q4

REPORT INFORMATION
  Report Type: 
  Country: None (occurrence: None)
  Receive Date: 20071206
  Receipt Date: 20071124
  Transmission Date: 20080405
  Serious: Yes (Other)
  Sender: FDA-Public Use
  Company Number: US-PFIZER INC-2007061772

PATIENT
  Sex: Male
  Weight: 80.3 kg

DRUGS (1)
  1. VIAGRA [Suspect]
     Indication: ERECTILE DYSFUNCTION

REACTIONS (2)
  - BLADDER NEOPLASM [None]
  - HAEMATURIA [None]
